FAERS Safety Report 5959763-6 (Version None)
Quarter: 2008Q4

REPORT INFORMATION
  Report Type: 
  Country: None (occurrence: None)
  Receive Date: 20081119
  Receipt Date: 20081119
  Transmission Date: 20090506
  Serious: No
  Sender: FDA-Public Use
  Company Number: None

PATIENT
  Age: 76 Year
  Sex: Male

DRUGS (2)
  1. CONTRAST (OMNI 300) [Suspect]
     Indication: COMPUTERISED TOMOGRAM
     Dosage: IV X 1 (100 ML)
     Route: 042
     Dates: start: 20080617
  2. M.V.I. [Concomitant]

REACTIONS (5)
  - BLOOD CREATININE INCREASED [None]
  - BLOOD POTASSIUM INCREASED [None]
  - HYPOPHAGIA [None]
  - JAUNDICE [None]
  - MALAISE [None]
